FAERS Safety Report 7334510-4 (Version None)
Quarter: 2011Q1

REPORT INFORMATION
  Report Type: 
  Country: None (occurrence: None)
  Receive Date: 20110307
  Receipt Date: 20110221
  Transmission Date: 20110831
  Serious: Yes (Hospitalization)
  Sender: FDA-Public Use
  Company Number: FR-CELGENEUS-056-C5013-11020039

PATIENT
  Sex: Male
  Weight: 68 kg

DRUGS (17)
  1. THALIDOMIDE [Suspect]
     Indication: MULTIPLE MYELOMA
     Dosage: 100 MILLIGRAM
     Route: 048
     Dates: start: 20101118
  2. THALIDOMIDE [Suspect]
     Dosage: 100 MILLIGRAM
     Route: 048
     Dates: start: 20101230
  3. MELPHALAN [Suspect]
     Dosage: 8 MILLIGRAM
     Route: 065
     Dates: start: 20101230, end: 20110102
  4. PREDNISONE [Suspect]
     Dosage: 140 MILLIGRAM
     Route: 065
     Dates: start: 20101230, end: 20110102
  5. CLOPIDOGREL [Concomitant]
     Indication: THROMBOSIS PROPHYLAXIS
     Dosage: 75 MILLIGRAM
     Route: 048
     Dates: start: 20100901
  6. BISOPROLOL FUMARATE [Concomitant]
     Dosage: 10 MILLIGRAM
     Route: 048
     Dates: start: 20100901
  7. DIFFU K [Concomitant]
     Indication: PROPHYLAXIS
     Dosage: 600 MILLIGRAM
     Route: 048
     Dates: start: 20100901
  8. MELPHALAN [Suspect]
     Indication: MULTIPLE MYELOMA
     Dosage: 6 MILLIGRAM
     Route: 065
     Dates: start: 20101118
  9. PREDNISONE [Suspect]
     Indication: MULTIPLE MYELOMA
     Dosage: 135 MILLIGRAM
     Route: 065
     Dates: start: 20101118
  10. CRESTOR [Concomitant]
     Dosage: 10 MILLIGRAM
     Route: 048
     Dates: start: 20100901
  11. KARDEGIC [Concomitant]
     Indication: THROMBOSIS PROPHYLAXIS
     Dosage: 75 MILLIGRAM
     Route: 048
     Dates: start: 20100515
  12. COVERSYL [Concomitant]
     Dosage: 10 MILLIGRAM
     Route: 048
     Dates: start: 20101105
  13. FUROSEMIDE [Concomitant]
     Dosage: 120 MILLIGRAM
     Route: 048
     Dates: start: 20101222
  14. DIFFU K [Concomitant]
     Route: 065
  15. BISOPROLOL FUMARATE [Concomitant]
     Dosage: 5 MILLIGRAM
     Route: 048
  16. FUROSEMIDE [Concomitant]
     Dosage: 80 MILLIGRAM
     Route: 048
     Dates: start: 20100901, end: 20101221
  17. CLASTOBAN [Concomitant]
     Indication: PROPHYLAXIS
     Dosage: 1600 MILLIGRAM
     Route: 048
     Dates: start: 20101117

REACTIONS (5)
  - CORONARY ARTERY STENOSIS [None]
  - CORONARY ARTERY INSUFFICIENCY [None]
  - BLOOD PRESSURE SYSTOLIC INCREASED [None]
  - CYTOLYTIC HEPATITIS [None]
  - MITRAL VALVE INCOMPETENCE [None]
